FAERS Safety Report 5525705-0 (Version None)
Quarter: 2007Q4

REPORT INFORMATION
  Report Type: 
  Country: None (occurrence: None)
  Receive Date: 20071120
  Receipt Date: 20071120
  Transmission Date: 20080405
  Serious: Yes (Life-Threatening, Other)
  Sender: FDA-Public Use
  Company Number: None

PATIENT
  Age: 23 Year
  Sex: Female
  Weight: 58.9676 kg

DRUGS (7)
  1. PROAIR HFA [Suspect]
     Indication: ASTHMA
     Dosage: 90 MCG PER INHALATION EVERY 2-4 HOURS INHAL
     Route: 055
     Dates: start: 20071101, end: 20071115
  2. ALBUTEROL [Concomitant]
  3. ADVAIR DISKUS 100/50 [Concomitant]
  4. SINGULAIR [Concomitant]
  5. PREDNISONE TAB [Concomitant]
  6. DESOGEN [Concomitant]
  7. APRI [Concomitant]

REACTIONS (3)
  - DRUG INEFFECTIVE [None]
  - PEAK EXPIRATORY FLOW RATE DECREASED [None]
  - PHARMACEUTICAL PRODUCT COMPLAINT [None]
